FAERS Safety Report 6301536-9 (Version None)
Quarter: 2009Q3

REPORT INFORMATION
  Report Type: 
  Country: None (occurrence: None)
  Receive Date: 20090807
  Receipt Date: 20090730
  Transmission Date: 20100115
  Serious: Yes (Other)
  Sender: FDA-Public Use
  Company Number: SK-WATSON-2009-05612

PATIENT
  Age: 48 Year
  Sex: Male

DRUGS (1)
  1. PREDNISONE (WATSON LABORATORIES) [Suspect]
     Indication: UVEITIS
     Dosage: 1 MG/KG, DAILY
     Route: 048
     Dates: start: 20040101

REACTIONS (1)
  - CHORIORETINOPATHY [None]
